FAERS Safety Report 4647474-9 (Version None)
Quarter: 2005Q3

REPORT INFORMATION
  Report Type: 
  Country: None (occurrence: None)
  Receive Date: 20050428
  Receipt Date: 20050428
  Transmission Date: 20060218
  Serious: Yes (Hospitalization, Other)
  Sender: FDA-Public Use
  Company Number: None

PATIENT
  Age: 55 Year
  Sex: Male

DRUGS (24)
  1. CIPROFLOXACIN [Suspect]
     Dosage: 500 MG BID
     Dates: start: 20041016, end: 20041115
  2. MYDRIACIL [Concomitant]
  3. NEOSYNEPHRINE [Concomitant]
  4. KEPPRA [Concomitant]
  5. ASPIRIN [Concomitant]
  6. IRON SULFATETHIAMIN COMPOUND TAB [Concomitant]
  7. ATENOLOL [Concomitant]
  8. GLUCOTROL XL [Concomitant]
  9. LASIX [Concomitant]
  10. CALCITRIOL [Concomitant]
  11. COZAAR [Concomitant]
  12. NORVASC [Concomitant]
  13. ZAROXOLYN [Concomitant]
  14. RAGLAN [Concomitant]
  15. CALCIUM CARBONATE [Concomitant]
  16. SEVELAMAR [Concomitant]
  17. SORBITOL [Concomitant]
  18. COLACE [Concomitant]
  19. HEPARIN [Concomitant]
  20. LEVAQUIN [Concomitant]
  21. GENTAMICIN [Concomitant]
  22. LANTUS [Concomitant]
  23. ZOCOR [Concomitant]
  24. NYSTATIN [Concomitant]

REACTIONS (10)
  - BILE DUCT STONE [None]
  - CHOLELITHIASIS [None]
  - CHOLESTASIS [None]
  - HEPATIC TRAUMA [None]
  - JAUNDICE [None]
  - LIVER FUNCTION TEST ABNORMAL [None]
  - MALAISE [None]
  - NAUSEA [None]
  - RASH ERYTHEMATOUS [None]
  - RASH GENERALISED [None]
